FAERS Safety Report 8522772-7 (Version None)
Quarter: 2012Q3

REPORT INFORMATION
  Report Type: 
  Country: None (occurrence: None)
  Receive Date: 20120719
  Receipt Date: 20120715
  Transmission Date: 20120928
  Serious: Yes (Other)
  Sender: FDA-Public Use
  Company Number: BE-ABBOTT-12P-013-0954319-00

PATIENT
  Age: 61 Year
  Sex: Female
  Weight: 71 kg

DRUGS (5)
  1. FLUTICASONE PROPIONATE/SALMETEROL [Concomitant]
  2. DIFLUCAN [Concomitant]
  3. MEDROL [Concomitant]
  4. TAMBOCOR [Concomitant]
     Indication: ARRHYTHMIA
  5. CLARITHROMYCIN [Suspect]
     Indication: BRONCHITIS
     Dosage: TWO IN ONE DAYS, AT NOON
     Dates: start: 20120626, end: 20120704

REACTIONS (6)
  - HYPERTENSION [None]
  - ORAL DISCOMFORT [None]
  - DYSPEPSIA [None]
  - TACHYCARDIA [None]
  - DYSGEUSIA [None]
  - ASTHENIA [None]
